FAERS Safety Report 8762003 (Version 9)
Quarter: 2015Q3

REPORT INFORMATION
  Report Type: Spontaneous
  Country: BR (occurrence: BR)
  Receive Date: 20120829
  Receipt Date: 20150904
  Transmission Date: 20151125
  Serious: Yes (Hospitalization, Disabling, Other)
  Sender: FDA-Public Use
  Company Number: BR-PFIZER INC-2012164870

PATIENT
  Age: 38 Year
  Sex: Female
  Weight: 69 kg

DRUGS (18)
  1. TRAMAL [Suspect]
     Active Substance: TRAMADOL
     Indication: MIGRAINE
  2. TYLEX [Concomitant]
     Active Substance: ACETAMINOPHEN\CODEINE PHOSPHATE
     Dosage: UNK, 3X/DAY
  3. TRAMAL [Suspect]
     Active Substance: TRAMADOL
     Indication: SPINAL PAIN
     Dosage: UNK
     Dates: start: 1995
  4. CYMBALTA [Concomitant]
     Active Substance: DULOXETINE HYDROCHLORIDE
     Indication: SPINAL DISORDER
     Dosage: 1 TABLET, DAILY
     Dates: start: 201403
  5. TYLEX [Concomitant]
     Active Substance: ACETAMINOPHEN\CODEINE PHOSPHATE
     Indication: PAIN
     Dosage: EVERY 8 HOURS
     Dates: start: 2009, end: 2009
  6. LYRICA [Suspect]
     Active Substance: PREGABALIN
     Indication: SPINAL PAIN
     Dosage: 75 MG, 2X/DAY (75 MG, 2 CAPSULES/DAY, IN THE MORNING AND AT NIGHT)
     Route: 048
     Dates: start: 201108, end: 201201
  7. CELEBRA [Suspect]
     Active Substance: CELECOXIB
     Indication: SPINAL PAIN
     Dosage: ONE CAPSULE DAILY
     Route: 048
     Dates: start: 2009
  8. SERTRALINE [Concomitant]
     Active Substance: SERTRALINE HYDROCHLORIDE
     Indication: DEPRESSION
     Dosage: 1 TABLET (50MG) IN THE MORNING
     Dates: start: 2010
  9. TRAMAL [Suspect]
     Active Substance: TRAMADOL
     Indication: PAIN
     Dosage: EVERY 6 HOURS
  10. RIVOTRIL [Concomitant]
     Active Substance: CLONAZEPAM
     Indication: DEPRESSION
     Dosage: 2 MG AT NIGHT
     Dates: start: 201104
  11. LYRICA [Suspect]
     Active Substance: PREGABALIN
     Indication: NEURALGIA
     Dosage: 150 MG, 2X/DAY (150 MG, 2 CAPSULES/DAY (IN THE MORNING AND AT NIGHT))
     Route: 048
     Dates: start: 201201, end: 201501
  12. TRAMAL [Suspect]
     Active Substance: TRAMADOL
     Indication: MIGRAINE
     Dosage: UNK
     Dates: start: 1995
  13. CELEBRA [Suspect]
     Active Substance: CELECOXIB
     Indication: ANTIINFLAMMATORY THERAPY
     Dosage: 1 DF, DAILY
     Dates: start: 201207
  14. TRAMAL [Suspect]
     Active Substance: TRAMADOL
     Indication: ARTHRODESIS
     Dosage: ONE CAPSULE (STRENGTH 50 MG), EVERY 8 HOURS
     Route: 048
     Dates: start: 2007, end: 201207
  15. RIVOTRIL [Concomitant]
     Active Substance: CLONAZEPAM
     Indication: ANXIETY
  16. CELEBRA [Suspect]
     Active Substance: CELECOXIB
     Indication: SPINAL PAIN
  17. PRISTIQ EXTENDED RELEASE [Concomitant]
     Active Substance: DESVENLAFAXINE SUCCINATE
     Indication: DEPRESSION
     Dosage: UNK
  18. CARBOLITIUM [Concomitant]
     Active Substance: LITHIUM CARBONATE
     Indication: DEPRESSION
     Dosage: STRENGTH 300MG
     Route: 048

REACTIONS (15)
  - Intervertebral disc protrusion [Not Recovered/Not Resolved]
  - Balance disorder [Unknown]
  - Spinal disorder [Unknown]
  - Chills [Not Recovered/Not Resolved]
  - Uterine leiomyoma [Unknown]
  - Nerve root compression [Unknown]
  - Spinal fracture [Unknown]
  - Pain [Unknown]
  - Dysstasia [Unknown]
  - Somnolence [Unknown]
  - Spinal pain [Unknown]
  - Condition aggravated [Unknown]
  - Fall [Unknown]
  - Drug ineffective [Not Recovered/Not Resolved]
  - Abdominal hernia [Unknown]

NARRATIVE: CASE EVENT DATE: 20111219
